FAERS Safety Report 9270689 (Version 3)
Quarter: 2013Q2

REPORT INFORMATION
  Report Type: Spontaneous
  Country: FR (occurrence: FR)
  Receive Date: 20130506
  Receipt Date: 20130620
  Transmission Date: 20140414
  Serious: Yes (Other)
  Sender: FDA-Public Use
  Company Number: FR-ROCHE-1221055

PATIENT
  Sex: Male
  Weight: 80 kg

DRUGS (4)
  1. PEGASYS [Suspect]
     Indication: HEPATITIS C
     Dosage: 180 MCG
     Route: 058
     Dates: start: 20130207, end: 20130426
  2. PEGASYS [Suspect]
     Route: 058
     Dates: start: 20130306
  3. COPEGUS [Suspect]
     Indication: HEPATITIS C
     Dosage: 200 MG
     Route: 048
     Dates: start: 20130207, end: 20130428
  4. COPEGUS [Suspect]
     Route: 065
     Dates: start: 20130306

REACTIONS (2)
  - Epilepsy [Recovered/Resolved]
  - Fatigue [Unknown]
